FAERS Safety Report 4578671-9 (Version None)
Quarter: 2005Q1

REPORT INFORMATION
  Report Type: 
  Country: None (occurrence: None)
  Receive Date: 20050207
  Receipt Date: 20050207
  Transmission Date: 20050727
  Serious: Yes (Other)
  Sender: FDA-Public Use
  Company Number: None

PATIENT
  Age: 25 Year
  Sex: Female
  Weight: 90.7194 kg

DRUGS (2)
  1. VIOXX [Suspect]
     Indication: PAIN
     Dosage: 25MG  2X A DAY
     Dates: start: 20030525, end: 20030530
  2. ELAVIL [Suspect]
     Indication: INSOMNIA
     Dosage: 10MG  1X A DAY
     Dates: start: 20030525, end: 20030530

REACTIONS (2)
  - CHEST PAIN [None]
  - HEART RATE INCREASED [None]
